FAERS Safety Report 7125959-3 (Version None)
Quarter: 2010Q4

REPORT INFORMATION
  Report Type: 
  Country: None (occurrence: None)
  Receive Date: 20101129
  Receipt Date: 20101118
  Transmission Date: 20110411
  Serious: Yes (Other)
  Sender: FDA-Public Use
  Company Number: FR-JNJFOC-20101106824

PATIENT
  Age: 33 Year
  Sex: Male

DRUGS (2)
  1. REMICADE [Suspect]
     Indication: CROHN'S DISEASE
     Route: 042
  2. REMICADE [Suspect]
     Dosage: 29TH INFUSION
     Route: 042

REACTIONS (5)
  - FLUSHING [None]
  - HYPERTENSION [None]
  - INFUSION RELATED REACTION [None]
  - SENSE OF OPPRESSION [None]
  - VASODILATATION [None]
